FAERS Safety Report 25925181 (Version 1)
Quarter: 2025Q4

REPORT INFORMATION
  Report Type: Spontaneous
  Country: EU (occurrence: EU)
  Receive Date: 20251015
  Receipt Date: 20251015
  Transmission Date: 20260117
  Serious: Yes (Life-Threatening)
  Sender: FRESENIUS KABI
  Company Number: None

PATIENT
  Age: 34 Year
  Sex: Female
  Weight: 80 kg

DRUGS (9)
  1. PROPOFOL [Suspect]
     Active Substance: PROPOFOL
     Indication: Light anaesthesia
     Route: 042
     Dates: start: 20250909, end: 20250909
  2. KETOPROFEN [Suspect]
     Active Substance: KETOPROFEN
     Indication: Pain
     Route: 042
     Dates: start: 20250909, end: 20250909
  3. SULPROSTONE [Suspect]
     Active Substance: SULPROSTONE
     Indication: Postpartum haemorrhage
     Route: 042
     Dates: start: 20250909, end: 20250909
  4. CEFAZOLIN SODIUM [Suspect]
     Active Substance: CEFAZOLIN SODIUM
     Indication: Antibiotic prophylaxis
     Route: 042
     Dates: start: 20250909, end: 20250909
  5. EPINEPHRINE\LIDOCAINE [Suspect]
     Active Substance: EPINEPHRINE\LIDOCAINE
     Indication: Anaesthesia procedure
     Route: 008
     Dates: start: 20250909, end: 20250909
  6. SUFENTANIL CITRATE [Suspect]
     Active Substance: SUFENTANIL CITRATE
     Indication: Anaesthesia procedure
     Route: 008
     Dates: start: 20250909, end: 20250909
  7. CARBETOCIN [Suspect]
     Active Substance: CARBETOCIN
     Indication: Uterine atony
     Route: 042
     Dates: start: 20250909, end: 20250909
  8. TRANEXAMIC ACID [Suspect]
     Active Substance: TRANEXAMIC ACID
     Indication: Postpartum haemorrhage
     Route: 042
     Dates: start: 20250909, end: 20250909
  9. MORPHINE SULFATE [Suspect]
     Active Substance: MORPHINE SULFATE
     Indication: Pain
     Route: 008
     Dates: start: 20250909, end: 20250909

REACTIONS (2)
  - Angioedema [Recovered/Resolved]
  - Anaphylactic reaction [Recovered/Resolved]

NARRATIVE: CASE EVENT DATE: 20250909
